FAERS Safety Report 8292272-0 (Version None)
Quarter: 2012Q2

REPORT INFORMATION
  Report Type: 
  Country: None (occurrence: None)
  Receive Date: 20120417
  Receipt Date: 20120410
  Transmission Date: 20120825
  Serious: Yes (Other)
  Sender: FDA-Public Use
  Company Number: CA-ROCHE-1058218

PATIENT
  Sex: Female

DRUGS (4)
  1. QVAR 40 [Concomitant]
  2. ADVAIR DISKUS 100/50 [Concomitant]
  3. VENTOLIN [Concomitant]
  4. OMALIZUMAB [Suspect]
     Indication: ASTHMA
     Route: 058
     Dates: start: 20111103

REACTIONS (4)
  - URINARY TRACT INFECTION [None]
  - BLOOD URINE PRESENT [None]
  - OVARIAN CYST [None]
  - ABDOMINAL PAIN UPPER [None]
